FAERS Safety Report 5092841-5 (Version None)
Quarter: 2006Q3

REPORT INFORMATION
  Report Type: 
  Country: None (occurrence: None)
  Receive Date: 20060824
  Receipt Date: 20060822
  Transmission Date: 20061208
  Serious: Yes (Disabling)
  Sender: FDA-Public Use
  Company Number: 200610231

PATIENT
  Age: 36 Year
  Sex: Female
  Weight: 60 kg

DRUGS (1)
  1. HAEMATE HS (FACTOR VIII (ANTIHAEMOPHILIC FACTOR) (ZLB BEHRING) [Suspect]
     Indication: VON WILLEBRAND'S DISEASE
     Dosage: 3000 IU DAILY IV
     Route: 042
     Dates: start: 20060504

REACTIONS (9)
  - ANGINA PECTORIS [None]
  - CARDIAC DISCOMFORT [None]
  - DIZZINESS [None]
  - DRUG INEFFECTIVE [None]
  - DYSPNOEA [None]
  - FACTOR VIII INHIBITION [None]
  - FIBRIN D DIMER INCREASED [None]
  - HEADACHE [None]
  - PHARMACEUTICAL PRODUCT COMPLAINT [None]
